FAERS Safety Report 5064950-8 (Version None)
Quarter: 2006Q3

REPORT INFORMATION
  Report Type: 
  Country: None (occurrence: None)
  Receive Date: 20060727
  Receipt Date: 20060727
  Transmission Date: 20061208
  Serious: Yes (Hospitalization)
  Sender: FDA-Public Use
  Company Number: None

PATIENT
  Age: 51 Year
  Sex: Male
  Weight: 75 kg

DRUGS (9)
  1. PEG INTERFERON ALFA 2A     180 MCG/0.5ML     ROCHE [Suspect]
     Indication: HEPATITIS
     Dosage: 180 MCG   WEEKLY   SQ
     Route: 058
     Dates: start: 20060117, end: 20060726
  2. ALBUTEROL/IPRATROP [Concomitant]
  3. ALBUTEROL SPIROS [Concomitant]
  4. FELODIPINE [Concomitant]
  5. FLUNISOLIDE [Concomitant]
  6. FORMOTEROL FUMARATE [Concomitant]
  7. MORPHINE SO4 [Concomitant]
  8. OMEPRAZOLE [Concomitant]
  9. OXYCODONE HCL [Concomitant]

REACTIONS (9)
  - AGITATION [None]
  - DELIRIUM [None]
  - DRUG WITHDRAWAL SYNDROME [None]
  - DYSTONIA [None]
  - EXTRAPYRAMIDAL DISORDER [None]
  - MANIA [None]
  - MULTIPLE DRUG OVERDOSE [None]
  - SEROTONIN SYNDROME [None]
  - THINKING ABNORMAL [None]
